FAERS Safety Report 24768745 (Version 1)
Quarter: 2024Q4

REPORT INFORMATION
  Report Type: Spontaneous
  Country: CN (occurrence: CN)
  Receive Date: 20241224
  Receipt Date: 20241224
  Transmission Date: 20250115
  Serious: Yes (Other)
  Sender: Kenvue
  Company Number: CN-KENVUE-20241206397

PATIENT

DRUGS (1)
  1. CHILDRENS MOTRIN [Suspect]
     Active Substance: IBUPROFEN
     Indication: Pyrexia
     Dosage: 15 MILLILITER, SINGLE
     Route: 048
     Dates: start: 20241204, end: 20241204

REACTIONS (2)
  - Off label use [Unknown]
  - Eyelid oedema [Recovering/Resolving]

NARRATIVE: CASE EVENT DATE: 20241204
